FAERS Safety Report 26094051 (Version 1)
Quarter: 2025Q4

REPORT INFORMATION
  Report Type: Spontaneous
  Country: US (occurrence: US)
  Receive Date: 20251126
  Receipt Date: 20251126
  Transmission Date: 20260118
  Serious: Yes (Life-Threatening, Hospitalization)
  Sender: MYLAN
  Company Number: US-MYLANLABS-2025M1100589

PATIENT
  Age: 53 Year
  Sex: Female

DRUGS (8)
  1. NOREPINEPHRINE BITARTRATE [Suspect]
     Active Substance: NOREPINEPHRINE BITARTRATE
     Indication: Hypotension
     Dosage: UNK, INFUSION
  2. NOREPINEPHRINE BITARTRATE [Suspect]
     Active Substance: NOREPINEPHRINE BITARTRATE
     Dosage: UNK, INFUSION
     Route: 065
  3. NOREPINEPHRINE BITARTRATE [Suspect]
     Active Substance: NOREPINEPHRINE BITARTRATE
     Dosage: UNK, INFUSION
     Route: 065
  4. NOREPINEPHRINE BITARTRATE [Suspect]
     Active Substance: NOREPINEPHRINE BITARTRATE
     Dosage: UNK, INFUSION
  5. ATROPINE [Suspect]
     Active Substance: ATROPINE
     Indication: Bradycardia
     Dosage: UNK, THREE DOSES TOTAL OF 1.5MG
  6. ATROPINE [Suspect]
     Active Substance: ATROPINE
     Dosage: UNK, THREE DOSES TOTAL OF 1.5MG
     Route: 065
  7. ATROPINE [Suspect]
     Active Substance: ATROPINE
     Dosage: UNK, THREE DOSES TOTAL OF 1.5MG
     Route: 065
  8. ATROPINE [Suspect]
     Active Substance: ATROPINE
     Dosage: UNK, THREE DOSES TOTAL OF 1.5MG

REACTIONS (1)
  - Drug ineffective [Unknown]
